FAERS Safety Report 14331174 (Version 2)
Quarter: 2018Q1

REPORT INFORMATION
  Report Type: Spontaneous
  Country: IT (occurrence: IT)
  Receive Date: 20171228
  Receipt Date: 20180227
  Transmission Date: 20180509
  Serious: Yes (Death)
  Sender: FDA-Public Use
  Company Number: IT-CIPLA LTD.-2017IT25103

PATIENT

DRUGS (1)
  1. AMLODIPINE [Suspect]
     Active Substance: AMLODIPINE BESYLATE
     Indication: PRODUCT USED FOR UNKNOWN INDICATION
     Dosage: UNK
     Route: 065

REACTIONS (3)
  - Unresponsive to stimuli [Fatal]
  - Toxicity to various agents [Fatal]
  - Apnoea [Fatal]
